FAERS Safety Report 9519752 (Version 2)
Quarter: 2013Q3

REPORT INFORMATION
  Report Type: Report from Study
  Country: JP (occurrence: JP)
  Receive Date: 20130912
  Receipt Date: 20130912
  Transmission Date: 20140515
  Serious: Yes (Hospitalization)
  Sender: FDA-Public Use
  Company Number: JP-VERTEX PHARMACEUTICALS INC-AE-2012-011700

PATIENT
  Age: 61 Year
  Sex: Male

DRUGS (6)
  1. VX-950 (TELAPREVIR) [Suspect]
     Indication: CHRONIC HEPATITIS C
     Dosage: 1500 MG, QD
     Route: 048
     Dates: start: 20120203, end: 20120425
  2. RIBAVIRIN [Suspect]
     Indication: CHRONIC HEPATITIS C
     Route: 048
     Dates: start: 20120203, end: 20120507
  3. PEGINTERFERON ALFA-2B [Suspect]
     Indication: CHRONIC HEPATITIS C
     Dosage: 1.4 ?G/KG, QW
     Route: 058
     Dates: start: 20120203, end: 20120425
  4. ALTAT [Concomitant]
     Dosage: 150 MG, UNK
     Route: 048
  5. SELBEX [Concomitant]
     Route: 048
     Dates: start: 20120203, end: 20120507
  6. DIACORT [Concomitant]
     Dosage: UNK, PRN
     Route: 061

REACTIONS (1)
  - Altered state of consciousness [Recovered/Resolved]
